FAERS Safety Report 4889580-X (Version None)
Quarter: 2006Q1

REPORT INFORMATION
  Report Type: 
  Country: None (occurrence: None)
  Receive Date: 20060120
  Receipt Date: 20060110
  Transmission Date: 20060701
  Serious: Yes (Other)
  Sender: FDA-Public Use
  Company Number: 2006-008

PATIENT
  Age: 68 Year
  Sex: Female

DRUGS (2)
  1. CARBOPLATIN [Suspect]
     Indication: NON-SMALL CELL LUNG CANCER
  2. PACLITAXEL [Suspect]
     Indication: NON-SMALL CELL LUNG CANCER

REACTIONS (6)
  - ABDOMINAL DISTENSION [None]
  - ABDOMINAL PAIN [None]
  - BLOOD LACTATE DEHYDROGENASE INCREASED [None]
  - DIARRHOEA HAEMORRHAGIC [None]
  - NEUTROPENIC COLITIS [None]
  - PYREXIA [None]
